FAERS Safety Report 6896395-X (Version None)
Quarter: 2010Q3

REPORT INFORMATION
  Report Type: 
  Country: None (occurrence: None)
  Receive Date: 20100802
  Receipt Date: 20090131
  Transmission Date: 20110219
  Serious: No
  Sender: FDA-Public Use
  Company Number: US-PFIZER INC-2009154634

PATIENT
  Sex: Female
  Weight: 76.7 kg

DRUGS (1)
  1. NEURONTIN [Suspect]
     Indication: PARAESTHESIA
     Dosage: 300 MG, 2X/DAY
     Route: 048
     Dates: start: 20081219

REACTIONS (5)
  - ASTHENIA [None]
  - BODY HEIGHT DECREASED [None]
  - DIZZINESS [None]
  - HEAD DISCOMFORT [None]
  - NIGHTMARE [None]
